FAERS Safety Report 6768855-3 (Version None)
Quarter: 2010Q2

REPORT INFORMATION
  Report Type: 
  Country: None (occurrence: None)
  Receive Date: 20100611
  Receipt Date: 20100528
  Transmission Date: 20101027
  Serious: Yes (Other)
  Sender: FDA-Public Use
  Company Number: DSJ-2010-08820

PATIENT
  Age: 36 Year
  Sex: Female

DRUGS (3)
  1. BENICAR HCT [Suspect]
     Indication: HYPERTENSION
     Dosage: DOSE NOT INFORMED (1 IN 1 D),PER ORAL
     Route: 048
     Dates: start: 20080101, end: 20080101
  2. SERTRALINE [Concomitant]
  3. CLONAZEPAM [Concomitant]

REACTIONS (4)
  - ASTHENIA [None]
  - HYPOTENSION [None]
  - PERIPHERAL COLDNESS [None]
  - PRESYNCOPE [None]
